FAERS Safety Report 17641933 (Version 2)
Quarter: 2020Q2

REPORT INFORMATION
  Report Type: Spontaneous
  Country: LT (occurrence: LT)
  Receive Date: 20200407
  Receipt Date: 20200422
  Transmission Date: 20200713
  Serious: Yes (Life-Threatening, Hospitalization, Other)
  Sender: FDA-Public Use
  Company Number: LT-AMGEN-LTUSP2020055328

PATIENT
  Age: 69 Year
  Sex: Male
  Weight: 80 kg

DRUGS (3)
  1. ENBREL [Suspect]
     Active Substance: ETANERCEPT
     Indication: PSORIASIS
     Dosage: 50 MG, WEEKLY
     Route: 058
     Dates: start: 200912, end: 20200228
  2. ENBREL [Suspect]
     Active Substance: ETANERCEPT
     Indication: PSORIASIS
  3. ENBREL [Suspect]
     Active Substance: ETANERCEPT
     Indication: PSORIATIC ARTHROPATHY

REACTIONS (9)
  - Pneumonia [Unknown]
  - Neoplasm malignant [Unknown]
  - Lymphoma [Unknown]
  - Bacterial infection [Unknown]
  - Malignant respiratory tract neoplasm [Unknown]
  - Pericardial effusion [Unknown]
  - Adrenal gland cancer [Unknown]
  - Cardiac tamponade [Unknown]
  - Asthenia [Unknown]

NARRATIVE: CASE EVENT DATE: 20200224
